FAERS Safety Report 20011735 (Version 1)
Quarter: 2021Q4

REPORT INFORMATION
  Report Type: Spontaneous
  Country: US (occurrence: US)
  Receive Date: 20211029
  Receipt Date: 20211029
  Transmission Date: 20220303
  Serious: No
  Sender: FDA-Public Use
  Company Number: US-BAUSCH-BL-2021-035618

PATIENT
  Sex: Female

DRUGS (3)
  1. TIMOPTIC [Suspect]
     Active Substance: TIMOLOL MALEATE
     Indication: Product used for unknown indication
     Route: 047
  2. TROPICAMIDE [Suspect]
     Active Substance: TROPICAMIDE
     Indication: Mydriasis
     Route: 065
  3. PHENOL [Suspect]
     Active Substance: PHENOL
     Indication: Mydriasis
     Route: 065

REACTIONS (1)
  - Reaction to excipient [Unknown]
